FAERS Safety Report 20643614 (Version 1)
Quarter: 2022Q1

REPORT INFORMATION
  Report Type: Spontaneous
  Country: US (occurrence: US)
  Receive Date: 20220328
  Receipt Date: 20220328
  Transmission Date: 20220423
  Serious: Yes (Death)
  Sender: FDA-Public Use
  Company Number: US-TEVA-2022-US-2020854

PATIENT
  Age: 63 Year
  Sex: Female

DRUGS (19)
  1. WARFARIN [Suspect]
     Active Substance: WARFARIN
     Route: 065
     Dates: start: 202203, end: 20220303
  2. WARFARIN [Suspect]
     Active Substance: WARFARIN
     Route: 065
     Dates: start: 20220307
  3. MOVANTIK [Suspect]
     Active Substance: NALOXEGOL OXALATE
     Indication: Constipation
     Route: 048
     Dates: start: 202202, end: 20220303
  4. DULOXETINE [Concomitant]
     Active Substance: DULOXETINE
     Route: 065
  5. CARBAMAZEPINE [Concomitant]
     Active Substance: CARBAMAZEPINE
     Route: 065
  6. FLUOXETINE [Concomitant]
     Active Substance: FLUOXETINE HYDROCHLORIDE
     Route: 065
  7. POTASSIUM [Concomitant]
     Active Substance: POTASSIUM
     Route: 065
  8. COLESTIPOL [Concomitant]
     Active Substance: COLESTIPOL
     Route: 065
  9. DILTIAZEM [Concomitant]
     Active Substance: DILTIAZEM
     Route: 065
  10. METOPROLOL [Concomitant]
     Active Substance: METOPROLOL
     Route: 065
  11. TORSEMDIE [Concomitant]
     Route: 065
  12. BUMETANIDE [Concomitant]
     Active Substance: BUMETANIDE
     Route: 065
  13. DIGOXIN [Concomitant]
     Active Substance: DIGOXIN
     Route: 065
  14. BUPROPION [Concomitant]
     Active Substance: BUPROPION
     Route: 065
  15. LEVOTHYROXINE [Concomitant]
     Active Substance: LEVOTHYROXINE
     Route: 065
  16. OMEPRAZOLE [Concomitant]
     Active Substance: OMEPRAZOLE
     Route: 065
  17. CALCIUM [Concomitant]
     Active Substance: CALCIUM
     Route: 065
  18. EZETIMIBE [Concomitant]
     Active Substance: EZETIMIBE
     Route: 065
  19. LYSINE [Concomitant]
     Active Substance: LYSINE
     Route: 065

REACTIONS (4)
  - Circulatory collapse [Fatal]
  - Gait disturbance [Fatal]
  - Tremor [Fatal]
  - Hyperhidrosis [Fatal]
